FAERS Safety Report 8616229-2 (Version None)
Quarter: 2012Q3

REPORT INFORMATION
  Report Type: 
  Country: None (occurrence: None)
  Receive Date: 20120823
  Receipt Date: 20120821
  Transmission Date: 20120928
  Serious: Yes (Death, Hospitalization)
  Sender: FDA-Public Use
  Company Number: CA-ROCHE-1034397

PATIENT
  Sex: Female
  Weight: 81.266 kg

DRUGS (14)
  1. METOPROLOL TARTRATE [Concomitant]
  2. HYDROXYCHLOROQUINE SULFATE [Concomitant]
  3. FOLIC ACID [Concomitant]
  4. CALCIUM [Concomitant]
  5. CELEBREX [Concomitant]
  6. RABEPRAZOLE SODIUM [Concomitant]
  7. MULTI-VITAMIN [Concomitant]
  8. PREDNISONE TAB [Concomitant]
     Dosage: DOSE UNKNOWN
  9. HYDROCHLOROTHIAZIDE [Concomitant]
  10. ROACTEMRA [Suspect]
     Indication: RHEUMATOID ARTHRITIS
     Route: 042
     Dates: start: 20110204, end: 20120706
  11. METHOTREXATE [Concomitant]
  12. PREDNISONE TAB [Concomitant]
     Dosage: DOSE INCREASED
  13. LISINOPRIL [Concomitant]
  14. VITAMIN D [Concomitant]

REACTIONS (2)
  - RHEUMATOID ARTHRITIS [None]
  - CEREBROVASCULAR ACCIDENT [None]
